FAERS Safety Report 5254705-3 (Version None)
Quarter: 2007Q1

REPORT INFORMATION
  Report Type: 
  Country: None (occurrence: None)
  Receive Date: 20070227
  Receipt Date: 20070212
  Transmission Date: 20070707
  Serious: Yes (Other)
  Sender: FDA-Public Use
  Company Number: 236610

PATIENT
  Age: 72 Year
  Sex: Female

DRUGS (1)
  1. AVASTIN [Suspect]
     Indication: MACULAR DEGENERATION
     Dosage: SINGLE, INTRAVITREAL
     Dates: start: 20060203, end: 20060203

REACTIONS (6)
  - DISCOMFORT [None]
  - EYE INFLAMMATION [None]
  - INTRAOCULAR PRESSURE INCREASED [None]
  - PHOTOSENSITIVITY REACTION [None]
  - VISION BLURRED [None]
  - VISUAL DISTURBANCE [None]
